FAERS Safety Report 17155497 (Version 5)
Quarter: 2020Q1

REPORT INFORMATION
  Report Type: Spontaneous
  Country: JP (occurrence: JP)
  Receive Date: 20191215
  Receipt Date: 20200311
  Transmission Date: 20200409
  Serious: Yes (Death, Life-Threatening, Hospitalization, Other)
  Sender: FDA-Public Use
  Company Number: JP-009507513-1912JPN000959J

PATIENT
  Age: 71 Year
  Sex: Male
  Weight: 41 kg

DRUGS (8)
  1. CUBICIN [Suspect]
     Active Substance: DAPTOMYCIN
     Indication: STAPHYLOCOCCAL INFECTION
     Dosage: 240 MILLIGRAM, QD
     Route: 041
     Dates: start: 20191203, end: 20191204
  2. NEXIUM [Concomitant]
     Active Substance: ESOMEPRAZOLE MAGNESIUM
     Indication: GASTRIC MUCOSAL LESION
     Dosage: 10 MILLIGRAM, QD
     Route: 048
     Dates: start: 20190822, end: 20191204
  3. LOPERAMIDE [Concomitant]
     Active Substance: LOPERAMIDE
     Indication: CONSTIPATION
     Dosage: 1 MILLIGRAM, TID
     Route: 048
     Dates: start: 20190831, end: 20191204
  4. BISONO [Concomitant]
     Active Substance: BISOPROLOL
     Indication: HYPERTENSION
     Dosage: 4 MILLIGRAM, QD
     Route: 051
     Dates: start: 20191203, end: 20191204
  5. CEFAZOLIN SODIUM. [Concomitant]
     Active Substance: CEFAZOLIN SODIUM
     Indication: BACTERIAL TEST POSITIVE
     Dosage: UNK
     Route: 065
  6. BFLUID [Concomitant]
     Active Substance: AMINO ACIDS\DEXTROSE\ELECTROLYTES NOS\VITAMINS
     Indication: NUTRITIONAL SUPPLEMENTATION
     Dosage: 500 MILLILITER, BID
     Route: 042
     Dates: start: 20190827, end: 20191204
  7. NIFEDIPINE. [Concomitant]
     Active Substance: NIFEDIPINE
     Indication: HYPERTENSION
     Dosage: 40 MILLIGRAM, BID
     Route: 048
     Dates: start: 20191109, end: 20191204
  8. MIYA-BM [Concomitant]
     Active Substance: CLOSTRIDIUM BUTYRICUM SPORES STRAIN M-55
     Indication: CONSTIPATION
     Dosage: 1 DOSAGE FORM, TID
     Route: 048
     Dates: start: 20190808, end: 20191204

REACTIONS (5)
  - Renal impairment [Fatal]
  - Multiple organ dysfunction syndrome [Fatal]
  - Shock [Fatal]
  - Renal tubular necrosis [Fatal]
  - Disseminated intravascular coagulation [Fatal]

NARRATIVE: CASE EVENT DATE: 20191204
